FAERS Safety Report 5594917-2 (Version None)
Quarter: 2007Q4

REPORT INFORMATION
  Report Type: 
  Country: None (occurrence: None)
  Receive Date: 20071218
  Receipt Date: 20070702
  Transmission Date: 20080405
  Serious: Yes (Hospitalization, Other)
  Sender: FDA-Public Use
  Company Number: 2007030839

PATIENT
  Age: 69 Year
  Sex: Female
  Weight: 63.5 kg

DRUGS (6)
  1. BEXTRA [Suspect]
     Indication: ARTHRALGIA
     Dosage: 20 MG (20 MG,1 IN 1 D)
     Dates: start: 20030909
  2. BEXTRA [Suspect]
     Indication: BACK INJURY
     Dosage: 20 MG (20 MG,1 IN 1 D)
     Dates: start: 20030909
  3. BEXTRA [Suspect]
     Indication: BACK PAIN
     Dosage: 20 MG (20 MG,1 IN 1 D)
     Dates: start: 20030909
  4. BEXTRA [Suspect]
     Indication: KNEE OPERATION
     Dosage: 20 MG (20 MG,1 IN 1 D)
     Dates: start: 20030909
  5. BEXTRA [Suspect]
     Indication: OSTEOARTHRITIS
     Dosage: 20 MG (20 MG,1 IN 1 D)
     Dates: start: 20030909
  6. BEXTRA [Suspect]
     Indication: SYNOVIAL CYST
     Dosage: 20 MG (20 MG,1 IN 1 D)
     Dates: start: 20030909

REACTIONS (2)
  - DEPRESSION [None]
  - MYOCARDIAL INFARCTION [None]
